FAERS Safety Report 20578308 (Version 2)
Quarter: 2022Q1

REPORT INFORMATION
  Report Type: Other
  Country: US (occurrence: None)
  Receive Date: 20220310
  Receipt Date: 20220313
  Transmission Date: 20220424
  Serious: Yes (Other)
  Sender: FDA-Public Use
  Company Number: US-ROCHE-3042582

PATIENT
  Sex: Female
  Weight: 99.8 kg

DRUGS (16)
  1. OCREVUS [Suspect]
     Active Substance: OCRELIZUMAB
     Indication: Multiple sclerosis
     Route: 065
  2. MOBIC [Concomitant]
     Active Substance: MELOXICAM
  3. LIPITOR [Concomitant]
     Active Substance: ATORVASTATIN CALCIUM
  4. JARDIANCE [Concomitant]
     Active Substance: EMPAGLIFLOZIN
  5. MELATONIN [Concomitant]
     Active Substance: MELATONIN
  6. RIBOFLAVIN [Concomitant]
     Active Substance: RIBOFLAVIN
  7. VITAMIN B2 [Concomitant]
     Active Substance: RIBOFLAVIN
  8. ROBAXIN [Concomitant]
     Active Substance: METHOCARBAMOL
  9. TRULICITY [Concomitant]
     Active Substance: DULAGLUTIDE
  10. PRINIVIL [Concomitant]
     Active Substance: LISINOPRIL
  11. ZESTRIL [Concomitant]
     Active Substance: LISINOPRIL
  12. PROVENTIL HFA [Concomitant]
     Active Substance: ALBUTEROL SULFATE
  13. VENTOLIN [Concomitant]
     Active Substance: ALBUTEROL SULFATE
  14. NEURONTIN [Concomitant]
     Active Substance: GABAPENTIN
  15. PEPCID [Concomitant]
     Active Substance: FAMOTIDINE
  16. CLINDAGEL [Concomitant]
     Active Substance: CLINDAMYCIN PHOSPHATE

REACTIONS (24)
  - Ataxia [Unknown]
  - Blood cholesterol increased [Unknown]
  - Low density lipoprotein increased [Unknown]
  - Alanine aminotransferase increased [Unknown]
  - Blood sodium decreased [Unknown]
  - Blood thyroid stimulating hormone decreased [Unknown]
  - Blood glucose decreased [Unknown]
  - Glycosylated haemoglobin increased [Unknown]
  - Multiple sclerosis relapse [Unknown]
  - Headache [Unknown]
  - Gait inability [Unknown]
  - Dizziness [Unknown]
  - Glycosylated haemoglobin decreased [Unknown]
  - Intervertebral disc protrusion [Unknown]
  - Hyperlipidaemia [Unknown]
  - Sleep apnoea syndrome [Unknown]
  - Mobility decreased [Unknown]
  - Balance disorder [Unknown]
  - Muscular weakness [Unknown]
  - Pain in extremity [Unknown]
  - Abdominal pain [Unknown]
  - Blood thyroid stimulating hormone abnormal [Unknown]
  - Cough [Unknown]
  - Eye pain [Unknown]
